FAERS Safety Report 7528604 (Version 1)
Quarter: 2020Q3

REPORT INFORMATION
  Report Type: Report from Study
  Country: US (occurrence: US)
  Receive Date: 20100805
  Receipt Date: 20100805
  Transmission Date: 20201104
  Serious: Yes (Hospitalization)
  Sender: FDA-Public Use
  Company Number: US-JNJFOC-20090301807

PATIENT
  Age: 59 Year
  Sex: Female
  Weight: 105.2 kg

DRUGS (41)
  1. CNTO 1275 [Suspect]
     Active Substance: USTEKINUMAB
     Route: 058
  2. CNTO 1275 [Suspect]
     Active Substance: USTEKINUMAB
     Route: 058
  3. AVANDIA [Concomitant]
     Active Substance: ROSIGLITAZONE MALEATE
     Route: 048
  4. CNTO 1275 [Suspect]
     Active Substance: USTEKINUMAB
     Route: 058
  5. CNTO 1275 [Suspect]
     Active Substance: USTEKINUMAB
     Route: 058
  6. EXCEDRIN [Concomitant]
     Active Substance: ACETAMINOPHEN\ASPIRIN\CAFFEINE
     Route: 048
  7. TYLENOL [Concomitant]
     Active Substance: ACETAMINOPHEN
     Route: 048
  8. ROBITUSSIN COUGH AND CONGESTION [Concomitant]
     Route: 048
  9. CNTO 1275 [Suspect]
     Active Substance: USTEKINUMAB
     Route: 058
  10. CNTO 1275 [Suspect]
     Active Substance: USTEKINUMAB
     Route: 058
  11. CELEXA [Concomitant]
     Active Substance: CITALOPRAM HYDROBROMIDE
     Route: 048
  12. GLYCOPYRROLATE. [Concomitant]
     Active Substance: GLYCOPYRROLATE
     Route: 048
  13. OXYCODONE WITH APAP [Concomitant]
     Route: 048
  14. UREA. [Concomitant]
     Active Substance: UREA
     Indication: DEBRIDEMENT
     Route: 061
  15. NEXIUM [Concomitant]
     Active Substance: ESOMEPRAZOLE MAGNESIUM
     Route: 048
  16. NITETIME MULTI SYMPTOM COLD [Concomitant]
     Route: 048
  17. CNTO 1275 [Suspect]
     Active Substance: USTEKINUMAB
     Route: 058
  18. CNTO 1275 [Suspect]
     Active Substance: USTEKINUMAB
     Route: 058
  19. MECLIZINE [Concomitant]
     Active Substance: MECLIZINE HYDROCHLORIDE
     Route: 048
  20. CNTO 1275 [Suspect]
     Active Substance: USTEKINUMAB
     Route: 058
  21. CNTO 1275 [Suspect]
     Active Substance: USTEKINUMAB
     Route: 058
  22. CNTO 1275 [Suspect]
     Active Substance: USTEKINUMAB
     Route: 058
  23. HYDROXYZINE [Concomitant]
     Active Substance: HYDROXYZINE HYDROCHLORIDE
     Route: 048
  24. VICKS NYQUIL [Concomitant]
     Active Substance: ACETAMINOPHEN\DEXTROMETHORPHAN HYDROBROMIDE\DOXYLAMINE SUCCINATE
     Route: 048
  25. CNTO 1275 [Suspect]
     Active Substance: USTEKINUMAB
     Route: 058
  26. CNTO 1275 [Suspect]
     Active Substance: USTEKINUMAB
     Route: 058
  27. CNTO 1275 [Suspect]
     Active Substance: USTEKINUMAB
     Route: 058
  28. CNTO 1275 [Suspect]
     Active Substance: USTEKINUMAB
     Route: 058
  29. SKELAXIN [Concomitant]
     Active Substance: METAXALONE
     Route: 048
  30. IMODIUM [Concomitant]
     Active Substance: LOPERAMIDE HYDROCHLORIDE
     Route: 048
  31. CNTO 1275 [Suspect]
     Active Substance: USTEKINUMAB
     Indication: PSORIASIS
     Route: 058
  32. BUTALBITAL, ACETAMINOPHEN, AND CAFFEINE [Concomitant]
     Active Substance: ACETAMINOPHEN\BUTALBITAL\CAFFEINE
     Route: 048
  33. NABUMETONE. [Concomitant]
     Active Substance: NABUMETONE
     Route: 048
  34. ADVIL PM [Concomitant]
     Active Substance: DIPHENHYDRAMINE CITRATE\IBUPROFEN
     Route: 048
  35. CELEBREX [Concomitant]
     Active Substance: CELECOXIB
     Route: 048
  36. JOINT MD [Concomitant]
     Route: 048
  37. CNTO 1275 [Suspect]
     Active Substance: USTEKINUMAB
     Route: 058
  38. CNTO 1275 [Suspect]
     Active Substance: USTEKINUMAB
     Route: 058
  39. LISINOPRIL. [Concomitant]
     Active Substance: LISINOPRIL
     Route: 048
  40. BENADRYL [Concomitant]
     Active Substance: DIPHENHYDRAMINE HYDROCHLORIDE
     Route: 048
  41. VYTORIN [Concomitant]
     Active Substance: EZETIMIBE\SIMVASTATIN
     Route: 048

REACTIONS (1)
  - Cellulitis [Recovered/Resolved]

NARRATIVE: CASE EVENT DATE: 20090131
